FAERS Safety Report 5710857-X (Version None)
Quarter: 2008Q2

REPORT INFORMATION
  Report Type: 
  Country: None (occurrence: None)
  Receive Date: 20080418
  Receipt Date: 20080408
  Transmission Date: 20081010
  Serious: Yes (Death, Hospitalization)
  Sender: FDA-Public Use
  Company Number: 163-21880-08011099

PATIENT
  Age: 55 Year
  Sex: Male

DRUGS (1)
  1. REVLIMID [Suspect]
     Indication: MULTIPLE MYELOMA
     Dosage: 25 MG, X21 DAYS EVERY 28 DAYS, ORAL
     Route: 048
     Dates: start: 20070926, end: 20071101

REACTIONS (3)
  - CARDIAC ARREST [None]
  - GINGIVAL BLEEDING [None]
  - SKIN DISORDER [None]
